FAERS Safety Report 17967609 (Version 1)
Quarter: 2020Q3

REPORT INFORMATION
  Report Type: Report from Study
  Country: US (occurrence: US)
  Receive Date: 20200701
  Receipt Date: 20200701
  Transmission Date: 20201103
  Serious: Yes (Death, Hospitalization, Other)
  Sender: FDA-Public Use
  Company Number: US-ASTELLAS-2020US016199

PATIENT
  Sex: Male

DRUGS (7)
  1. LUPRON [Concomitant]
     Active Substance: LEUPROLIDE ACETATE
     Indication: METASTASES TO BONE
     Dosage: UNK UNK, UNKNOWN FREQ.
     Route: 065
  2. FLOMAX [Concomitant]
     Active Substance: TAMSULOSIN HYDROCHLORIDE
     Indication: PRODUCT USED FOR UNKNOWN INDICATION
     Dosage: 0.4 MG, AT BEDTIME
     Route: 048
  3. ENZALUTAMIDE [Suspect]
     Active Substance: ENZALUTAMIDE
     Indication: PROSTATE CANCER
     Route: 048
     Dates: start: 20200119
  4. ASPIRIN [ACETYLSALICYLIC ACID] [Concomitant]
     Active Substance: ASPIRIN
     Indication: METASTASES TO BONE
     Route: 048
  5. ENZALUTAMIDE [Suspect]
     Active Substance: ENZALUTAMIDE
     Route: 048
     Dates: end: 20200318
  6. AMARYL [Concomitant]
     Active Substance: GLIMEPIRIDE
     Indication: METASTASES TO BONE
     Route: 048
     Dates: start: 20190125
  7. ZOMETA [Concomitant]
     Active Substance: ZOLEDRONIC ACID
     Indication: METASTASES TO BONE
     Dosage: UNK UNK, UNKNOWN FREQ.
     Route: 065

REACTIONS (14)
  - Acute kidney injury [Fatal]
  - Cardiac arrest [Fatal]
  - Renal tubular necrosis [Unknown]
  - Encephalopathy [Unknown]
  - Hyperglycaemia [Unknown]
  - Atrial fibrillation [Unknown]
  - Hypophagia [Unknown]
  - Cachexia [Fatal]
  - Pneumonia bacterial [Fatal]
  - Diarrhoea [Unknown]
  - Malignant neoplasm progression [Fatal]
  - Sepsis [Fatal]
  - Blood pressure decreased [Unknown]
  - Dehydration [Unknown]
